FAERS Safety Report 7425965 (Version 2)
Quarter: 2014Q1

REPORT INFORMATION
  Report Type: Spontaneous
  Country: US (occurrence: US)
  Receive Date: 20100621
  Receipt Date: 20140106
  Transmission Date: 20141002
  Serious: No
  Sender: FDA-Public Use
  Company Number: US-JNJFOC-20100604138

PATIENT
  Age: 44 Year
  Sex: Female
  Weight: 54.43 kg

DRUGS (10)
  1. DURAGESIC [Suspect]
     Indication: PAIN
     Route: 062
  2. DURAGESIC [Suspect]
     Indication: PAIN
     Route: 062
  3. DURAGESIC [Suspect]
     Indication: PAIN
     Route: 062
  4. LEVAQUIN [Concomitant]
     Indication: INFECTION
     Route: 065
  5. DIAZEPAM [Concomitant]
     Indication: ANXIETY
     Route: 048
  6. NEXIUM [Concomitant]
     Route: 048
  7. DILANTIN [Concomitant]
     Indication: CONVULSION
     Route: 048
  8. OXYCODONE [Concomitant]
     Indication: BREAKTHROUGH PAIN
     Route: 065
  9. NEORAL [Concomitant]
     Indication: IMMUNOSUPPRESSANT DRUG THERAPY
     Route: 048
  10. PREDNISONE [Concomitant]
     Indication: IMMUNOSUPPRESSANT DRUG THERAPY
     Route: 048

REACTIONS (3)
  - Drug effect decreased [Not Recovered/Not Resolved]
  - Nausea [Not Recovered/Not Resolved]
  - Treatment noncompliance [Not Recovered/Not Resolved]
